FAERS Safety Report 10061649 (Version 1)
Quarter: 2014Q2

REPORT INFORMATION
  Report Type: Spontaneous
  Country: US (occurrence: None)
  Receive Date: 20140404
  Receipt Date: 20140404
  Transmission Date: 20141212
  Serious: Yes (Hospitalization)
  Sender: FDA-Public Use
  Company Number: None

PATIENT
  Age: 27 Year
  Sex: Male
  Weight: 68.04 kg

DRUGS (1)
  1. PSEUDOEPHEDRINE [Suspect]
     Indication: SINUS DISORDER
     Dosage: 1 PILL?
     Route: 048
     Dates: start: 20130818, end: 20130820

REACTIONS (2)
  - Apparent death [None]
  - Injury [None]
